FAERS Safety Report 17193059 (Version 1)
Quarter: 2019Q4

REPORT INFORMATION
  Report Type: Spontaneous
  Country: CN (occurrence: CN)
  Receive Date: 20191223
  Receipt Date: 20191223
  Transmission Date: 20200122
  Serious: Yes (Other)
  Sender: FDA-Public Use
  Company Number: CN-PFIZER INC-2019539679

PATIENT
  Age: 30 Year
  Sex: Female
  Weight: 55 kg

DRUGS (1)
  1. SOLU-MEDROL [Suspect]
     Active Substance: METHYLPREDNISOLONE SODIUM SUCCINATE
     Indication: ASTHMA
     Dosage: 40 MG, 2X/DAY
     Route: 041
     Dates: start: 20191128, end: 20191128

REACTIONS (4)
  - Choking [Unknown]
  - Oropharyngeal discomfort [Recovered/Resolved]
  - Cough [Unknown]
  - Throat irritation [Unknown]

NARRATIVE: CASE EVENT DATE: 20191128
